FAERS Safety Report 8494406-1 (Version None)
Quarter: 2012Q3

REPORT INFORMATION
  Report Type: 
  Country: None (occurrence: None)
  Receive Date: 20120709
  Receipt Date: 20120629
  Transmission Date: 20120928
  Serious: Yes (Hospitalization, Other)
  Sender: FDA-Public Use
  Company Number: JP-SANOFI-AVENTIS-2011SA084748

PATIENT
  Age: 57 Year
  Sex: Male

DRUGS (13)
  1. FOIPAN [Concomitant]
     Route: 048
     Dates: start: 20111101
  2. BERIZYM [Concomitant]
     Route: 048
     Dates: start: 20111108
  3. ELENTAL [Concomitant]
     Route: 048
     Dates: start: 20111108
  4. BERBERINE HYDROCHLORIDE/HERBAL EXTRACT NOS [Concomitant]
     Route: 048
     Dates: start: 20111021, end: 20111108
  5. ASPARA K [Concomitant]
     Route: 048
     Dates: start: 20111021
  6. DIAZEPAM [Concomitant]
     Route: 048
     Dates: start: 20111025
  7. DIAZEPAM [Concomitant]
     Route: 048
     Dates: end: 20111109
  8. OZAGREL [Suspect]
     Indication: CEREBRAL INFARCTION
     Route: 042
     Dates: start: 20111107, end: 20111111
  9. LASIX [Concomitant]
     Route: 048
     Dates: start: 20111025
  10. LANSOPRAZOLE [Concomitant]
     Route: 048
     Dates: start: 20111107
  11. PLAVIX [Suspect]
     Indication: CEREBRAL INFARCTION
     Route: 048
     Dates: start: 20111107, end: 20111111
  12. ALDACTONE [Concomitant]
     Route: 048
     Dates: start: 20111025
  13. URSO 250 [Suspect]
     Route: 048
     Dates: start: 20111021, end: 20111111

REACTIONS (14)
  - DYSPNOEA [None]
  - OEDEMA PERIPHERAL [None]
  - DIARRHOEA [None]
  - INTERSTITIAL LUNG DISEASE [None]
  - PYREXIA [None]
  - RALES [None]
  - HYPOKALAEMIA [None]
  - HYPOGLYCAEMIA [None]
  - PANCREATITIS CHRONIC [None]
  - MALABSORPTION [None]
  - HYPOAESTHESIA [None]
  - CEREBRAL INFARCTION [None]
  - COUGH [None]
  - PRODUCTIVE COUGH [None]
